FAERS Safety Report 7934936 (Version 3)
Quarter: 2013Q4

REPORT INFORMATION
  Report Type: Spontaneous
  Country: US (occurrence: US)
  Receive Date: 20110509
  Receipt Date: 20131226
  Transmission Date: 20140711
  Serious: Yes (Hospitalization, Other)
  Sender: FDA-Public Use
  Company Number: US-BAYER-2011-038698

PATIENT
  Age: 26 Year
  Sex: Female
  Weight: 68.03 kg

DRUGS (4)
  1. YAZ [Suspect]
     Indication: CONTRACEPTION
     Dosage: UNK
     Dates: start: 2002, end: 2006
  2. YASMIN [Suspect]
     Indication: CONTRACEPTION
     Dosage: UNK
     Dates: start: 2002, end: 2006
  3. LEXAPRO [Concomitant]
     Indication: DEPRESSION
     Dosage: 20 MG, UNK
     Dates: start: 2002, end: 2011
  4. LEXAPRO [Concomitant]
     Indication: ANXIETY

REACTIONS (5)
  - Cholelithiasis [Unknown]
  - Cholecystitis chronic [None]
  - Anxiety [Unknown]
  - Anhedonia [Unknown]
  - Pain [None]
